FAERS Safety Report 7351937-5 (Version None)
Quarter: 2011Q1

REPORT INFORMATION
  Report Type: 
  Country: None (occurrence: None)
  Receive Date: 20110315
  Receipt Date: 20110303
  Transmission Date: 20110831
  Serious: Yes (Other)
  Sender: FDA-Public Use
  Company Number: CN-JNJFOC-20110207623

PATIENT
  Age: 19 Month
  Sex: Female
  Weight: 12 kg

DRUGS (2)
  1. TYLENOL [Suspect]
     Indication: PYREXIA
  2. TYLENOL [Suspect]

REACTIONS (3)
  - DIARRHOEA [None]
  - VOMITING [None]
  - HEART INJURY [None]
